FAERS Safety Report 9719711 (Version 1)
Quarter: 2013Q4

REPORT INFORMATION
  Report Type: Report from Study
  Country: ES (occurrence: ES)
  Receive Date: 20131128
  Receipt Date: 20131128
  Transmission Date: 20140711
  Serious: Yes (Hospitalization)
  Sender: FDA-Public Use
  Company Number: ES-009507513-1311ESP009932

PATIENT
  Age: 41 Year
  Sex: Female
  Weight: 70 kg

DRUGS (2)
  1. INTRONA [Suspect]
     Indication: MALIGNANT MELANOMA
     Dosage: 15 MUI/M2, 5 DAYS A WEEK
     Route: 042
     Dates: start: 20091106, end: 20091110
  2. IMUREL [Concomitant]
     Indication: CROHN^S DISEASE
     Dosage: 150 MG DAILY
     Route: 048

REACTIONS (2)
  - Polyserositis [Recovered/Resolved]
  - Cholecystitis acute [Recovered/Resolved]
